FAERS Safety Report 4652160-5 (Version None)
Quarter: 2005Q2

REPORT INFORMATION
  Report Type: 
  Country: None (occurrence: None)
  Receive Date: 20050408
  Receipt Date: 20050204
  Transmission Date: 20051028
  Serious: No
  Sender: FDA-Public Use
  Company Number: 230451K05USA

PATIENT
  Age: 26 Year
  Sex: Female

DRUGS (3)
  1. REBIF [Suspect]
     Indication: MULTIPLE SCLEROSIS
     Dosage: 44 MCG, 3 IN 1 WEEKS, SUBCUTANEOUS
     Route: 058
     Dates: start: 20041229
  2. UNSPECIFIED BIRTH CONTROL (ORAL CONTRACEPTIVE NOS) [Concomitant]
  3. UNSPECIFIED ANTIDEPRESSANT (ANTIDEPRESSANTS) [Concomitant]

REACTIONS (4)
  - HEADACHE [None]
  - MENORRHAGIA [None]
  - MENSTRUAL DISORDER [None]
  - METRORRHAGIA [None]
